FAERS Safety Report 12434265 (Version 2)
Quarter: 2016Q2

REPORT INFORMATION
  Report Type: Spontaneous
  Country: JP (occurrence: JP)
  Receive Date: 20160603
  Receipt Date: 20160628
  Transmission Date: 20160815
  Serious: Yes (Hospitalization, Other)
  Sender: FDA-Public Use
  Company Number: JP-GILEAD-2016-0215233

PATIENT
  Age: 51 Year
  Sex: Female

DRUGS (5)
  1. BARACLUDE [Concomitant]
     Active Substance: ENTECAVIR
     Dosage: 0.5 MG, 1D
     Dates: start: 201005
  2. BARACLUDE [Concomitant]
     Active Substance: ENTECAVIR
     Dosage: 0.5 MG, 1D
     Dates: start: 200710, end: 200902
  3. BARACLUDE [Concomitant]
     Active Substance: ENTECAVIR
     Dosage: 0.5 MG, QD
     Dates: start: 20071001, end: 20090218
  4. ZEFIX [Suspect]
     Active Substance: LAMIVUDINE
     Indication: PRODUCT USED FOR UNKNOWN INDICATION
     Dosage: 100 MG, 1D
     Route: 048
     Dates: start: 20060904, end: 20070930
  5. TENOFOVIR DISOPROXIL FUMARATE. [Suspect]
     Active Substance: TENOFOVIR DISOPROXIL FUMARATE
     Indication: CHRONIC HEPATITIS B
     Dosage: 300 MG, QD
     Route: 048
     Dates: start: 20100917

REACTIONS (7)
  - Viral load increased [Unknown]
  - Fatigue [Unknown]
  - Treatment noncompliance [Unknown]
  - Viral infection [Recovered/Resolved]
  - Drug ineffective [Unknown]
  - Ascites [Unknown]
  - Hepatitis B [Unknown]

NARRATIVE: CASE EVENT DATE: 201304
